FAERS Safety Report 7210249 (Version 4)
Quarter: 2014Q1

REPORT INFORMATION
  Report Type: Spontaneous
  Country: US (occurrence: US)
  Receive Date: 20091210
  Receipt Date: 20140129
  Transmission Date: 20141002
  Serious: Yes (Other)
  Sender: FDA-Public Use
  Company Number: US-JNJFOC-20091201765

PATIENT
  Age: 53 Year
  Sex: Female
  Weight: 47.63 kg

DRUGS (11)
  1. DURAGESIC [Suspect]
     Indication: BACK PAIN
     Dosage: 3 X 100 UG/HR, 3 PATCHES (100+100+100) IN 48-72 HOURS
     Route: 062
     Dates: start: 2005, end: 200911
  2. DURAGESIC [Suspect]
     Indication: PAIN
     Dosage: 3 X 100 UG/HR, 3 PATCHES (100+100+100) IN 48-72 HOURS
     Route: 062
     Dates: start: 2005, end: 200911
  3. DURAGESIC [Suspect]
     Indication: SPINAL PAIN
     Dosage: 3 X 100 UG/HR, 3 PATCHES (100+100+100) IN 48-72 HOURS
     Route: 062
     Dates: start: 200911
  4. DURAGESIC [Suspect]
     Indication: HEADACHE
     Dosage: 3 X 100 UG/HR, 3 PATCHES (100+100+100) IN 48-72 HOURS
     Route: 062
     Dates: start: 200911
  5. DURAGESIC [Suspect]
     Indication: BACK PAIN
     Dosage: 3 X 100 UG/HR, 3 PATCHES (100+100+100) IN 48-72 HOURS
     Route: 062
     Dates: start: 200911
  6. DURAGESIC [Suspect]
     Indication: PAIN
     Dosage: 3 X 100 UG/HR, 3 PATCHES (100+100+100) IN 48-72 HOURS
     Route: 062
     Dates: start: 200911
  7. NORCO [Concomitant]
     Indication: BREAKTHROUGH PAIN
     Route: 048
     Dates: end: 20100101
  8. HYDROCODONE [Concomitant]
     Indication: PAIN
     Route: 048
     Dates: start: 1989
  9. SOMA [Concomitant]
     Indication: MUSCLE RELAXANT THERAPY
     Route: 048
     Dates: start: 1989
  10. LYRICA [Concomitant]
     Indication: FIBROMYALGIA
     Route: 048
     Dates: start: 2008
  11. NEURONTIN [Concomitant]
     Indication: FIBROMYALGIA
     Route: 048
     Dates: end: 2008

REACTIONS (15)
  - Convulsion [Not Recovered/Not Resolved]
  - Fall [Not Recovered/Not Resolved]
  - Femur fracture [Not Recovered/Not Resolved]
  - Pain in extremity [Not Recovered/Not Resolved]
  - Arthralgia [Not Recovered/Not Resolved]
  - Malaise [Recovered/Resolved]
  - Loss of consciousness [Recovered/Resolved]
  - Product packaging issue [Unknown]
  - Road traffic accident [Recovered/Resolved]
  - Inadequate analgesia [Not Recovered/Not Resolved]
  - Pain [Not Recovered/Not Resolved]
  - Drug dose omission [Not Recovered/Not Resolved]
  - Back pain [Not Recovered/Not Resolved]
  - Product packaging quantity issue [Unknown]
  - Product quality issue [Unknown]
